FAERS Safety Report 6007324-5 (Version None)
Quarter: 2008Q4

REPORT INFORMATION
  Report Type: 
  Country: None (occurrence: None)
  Receive Date: 20081217
  Receipt Date: 20080307
  Transmission Date: 20090506
  Serious: No
  Sender: FDA-Public Use
  Company Number: US-ASTRAZENECA-2008UW04785

PATIENT
  Age: 71 Year
  Sex: Male
  Weight: 92.5 kg

DRUGS (3)
  1. CRESTOR [Suspect]
     Indication: BLOOD CHOLESTEROL INCREASED
     Route: 048
  2. LUPRON [Concomitant]
  3. LISINOPRIL [Concomitant]

REACTIONS (2)
  - PAIN [None]
  - PAIN IN EXTREMITY [None]
